FAERS Safety Report 7171542-3 (Version None)
Quarter: 2010Q4

REPORT INFORMATION
  Report Type: 
  Country: None (occurrence: None)
  Receive Date: 20101217
  Receipt Date: 20101210
  Transmission Date: 20110411
  Serious: Yes (Hospitalization, Other)
  Sender: FDA-Public Use
  Company Number: US-US-EMD SERONO, INC.-7012812

PATIENT
  Sex: Female
  Weight: 63 kg

DRUGS (14)
  1. REBIF [Suspect]
     Indication: MULTIPLE SCLEROSIS
     Route: 058
     Dates: start: 20100623, end: 20100101
  2. REBIF [Suspect]
     Route: 058
     Dates: start: 20100101, end: 20100101
  3. REBIF [Suspect]
     Route: 058
     Dates: start: 20100101
  4. CYMBALTA [Concomitant]
     Indication: PSYCHIATRIC SYMPTOM
     Dates: end: 20100101
  5. CYMBALTA [Concomitant]
     Indication: DEPRESSION
     Dates: start: 20100101
  6. XANAX [Concomitant]
     Indication: PSYCHIATRIC SYMPTOM
  7. XANAX [Concomitant]
     Indication: DEPRESSION
  8. BACLOFEN [Concomitant]
     Indication: MULTIPLE SCLEROSIS
     Dates: end: 20100701
  9. BACLOFEN [Concomitant]
     Dates: start: 20100101
  10. PROVIGIL [Concomitant]
     Indication: MULTIPLE SCLEROSIS
     Dates: end: 20100701
  11. PROVIGIL [Concomitant]
     Dates: start: 20100101
  12. COUMADIN [Concomitant]
     Indication: THROMBOSIS
  13. COPAXONE [Concomitant]
     Dates: end: 20100101
  14. LOVASTATIN [Concomitant]
     Indication: BLOOD CHOLESTEROL INCREASED

REACTIONS (7)
  - ANXIETY [None]
  - CHEST DISCOMFORT [None]
  - DEPRESSION [None]
  - MEMORY IMPAIRMENT [None]
  - MULTIPLE SCLEROSIS RELAPSE [None]
  - STRESS [None]
  - TREMOR [None]
